FAERS Safety Report 4280431-3 (Version None)
Quarter: 2004Q1

REPORT INFORMATION
  Report Type: 
  Country: None (occurrence: None)
  Receive Date: 20040122
  Receipt Date: 20040112
  Transmission Date: 20041129
  Serious: Yes (Hospitalization)
  Sender: FDA-Public Use
  Company Number: 200322599GDDC

PATIENT
  Age: 15 Year
  Sex: Female

DRUGS (1)
  1. BENZAMYCIN [Suspect]
     Indication: ACNE
     Dosage: TOP
     Route: 061
     Dates: start: 20031205, end: 20031205

REACTIONS (5)
  - APPLICATION SITE ERYTHEMA [None]
  - BURNING SENSATION [None]
  - DERMATITIS [None]
  - FACE OEDEMA [None]
  - PRURITUS [None]
